FAERS Safety Report 8179875-9 (Version None)
Quarter: 2012Q1

REPORT INFORMATION
  Report Type: 
  Country: None (occurrence: None)
  Receive Date: 20120302
  Receipt Date: 20120224
  Transmission Date: 20120608
  Serious: Yes (Hospitalization, Other)
  Sender: FDA-Public Use
  Company Number: US-BAYER-2012-019912

PATIENT
  Sex: Male

DRUGS (2)
  1. ASPIRIN [Suspect]
     Indication: HYPERHIDROSIS
  2. ASPIRIN [Suspect]
     Indication: CHEST PAIN
     Dosage: 2 DF, ONCE
     Route: 048

REACTIONS (1)
  - CARDIAC OPERATION [None]
